FAERS Safety Report 16648549 (Version 1)
Quarter: 2019Q3

REPORT INFORMATION
  Report Type: Spontaneous
  Country: GB (occurrence: GB)
  Receive Date: 20190730
  Receipt Date: 20190730
  Transmission Date: 20191004
  Serious: Yes (Other)
  Sender: FDA-Public Use
  Company Number: GB-GLAXOSMITHKLINE-GB2019136161

PATIENT
  Age: 33 Year
  Sex: Female
  Weight: 59 kg

DRUGS (7)
  1. SUMATRIPTAN SUCCINATE. [Suspect]
     Active Substance: SUMATRIPTAN SUCCINATE
     Indication: MIGRAINE WITH AURA
     Dosage: 50 MG, QD
     Route: 048
     Dates: start: 20190629, end: 20190629
  2. MONTELUKAST SODIUM. [Concomitant]
     Active Substance: MONTELUKAST SODIUM
     Indication: CYSTITIS INTERSTITIAL
     Dosage: UNK
     Route: 065
  3. CERELLE [Concomitant]
     Active Substance: DESOGESTREL
     Indication: PRODUCT USED FOR UNKNOWN INDICATION
     Dosage: UNK
     Route: 065
  4. CIMETIDINE [Concomitant]
     Active Substance: CIMETIDINE
     Indication: CYSTITIS INTERSTITIAL
     Dosage: UNK
     Route: 065
  5. AMITRIPTYLINE HYDROCHLORIDE. [Concomitant]
     Active Substance: AMITRIPTYLINE HYDROCHLORIDE
     Indication: CYSTITIS INTERSTITIAL
     Dosage: UNK
     Route: 065
  6. TERBINAFINE HYDROCHLORIDE. [Concomitant]
     Active Substance: TERBINAFINE HYDROCHLORIDE
     Indication: PRODUCT USED FOR UNKNOWN INDICATION
     Dosage: UNK
     Route: 065
  7. ACETAMINOPHEN AND CODEINE [Concomitant]
     Active Substance: ACETAMINOPHEN\CODEINE PHOSPHATE
     Indication: BLADDER PAIN
     Dosage: UNK
     Route: 065

REACTIONS (15)
  - Dysphonia [Unknown]
  - Disorientation [Not Recovered/Not Resolved]
  - Dyspnoea [Recovering/Resolving]
  - Fatigue [Not Recovered/Not Resolved]
  - Disturbance in attention [Not Recovered/Not Resolved]
  - Chest discomfort [Recovered/Resolved]
  - Hot flush [Unknown]
  - Tinnitus [Unknown]
  - Somnolence [Not Recovered/Not Resolved]
  - Pharyngeal swelling [Recovered/Resolved with Sequelae]
  - Feeling cold [Unknown]
  - Condition aggravated [Unknown]
  - Chest pain [Recovered/Resolved]
  - Nausea [Recovered/Resolved with Sequelae]
  - Migraine with aura [Unknown]

NARRATIVE: CASE EVENT DATE: 20190629
